FAERS Safety Report 17206297 (Version 1)
Quarter: 2019Q4

REPORT INFORMATION
  Report Type: Spontaneous
  Country: US (occurrence: US)
  Receive Date: 20191219
  Receipt Date: 20191219
  Transmission Date: 20200122
  Serious: No
  Sender: FDA-Public Use
  Company Number: US-GLENMARK PHARMACEUTICALS-2019GMK040281

PATIENT

DRUGS (2)
  1. CLOTRIMAZOLE/BETAMETHASONE DIPROPIONATE CREAM USP [Suspect]
     Active Substance: BETAMETHASONE DIPROPIONATE\CLOTRIMAZOLE
     Indication: FUNGAL INFECTION
  2. CLOTRIMAZOLE/BETAMETHASONE DIPROPIONATE CREAM USP [Suspect]
     Active Substance: BETAMETHASONE DIPROPIONATE\CLOTRIMAZOLE
     Indication: TINEA PEDIS
     Dosage: UNK (AT NOON)
     Route: 061
     Dates: start: 20190312

REACTIONS (2)
  - Drug ineffective [Unknown]
  - Prescription drug used without a prescription [Unknown]

NARRATIVE: CASE EVENT DATE: 20190312
